FAERS Safety Report 15274506 (Version 3)
Quarter: 2018Q4

REPORT INFORMATION
  Report Type: Spontaneous
  Country: JP (occurrence: JP)
  Receive Date: 20180814
  Receipt Date: 20181002
  Transmission Date: 20190204
  Serious: Yes (Other)
  Sender: FDA-Public Use
  Company Number: JP-ASTELLAS-2018JP015549

PATIENT
  Age: 76 Year
  Sex: Male

DRUGS (13)
  1. GRACEPTOR [Interacting]
     Active Substance: TACROLIMUS
     Dosage: 7 MG, ONCE DAILY, IN THE MORNING
     Route: 048
     Dates: start: 20151106, end: 20151110
  2. GRACEPTOR [Suspect]
     Active Substance: TACROLIMUS
     Indication: PROPHYLAXIS AGAINST TRANSPLANT REJECTION
     Dosage: 13 MG, ONCE DAILY, IN THE MORNING
     Route: 048
     Dates: start: 20151102, end: 20151105
  3. SOLU-MEDROL [Suspect]
     Active Substance: METHYLPREDNISOLONE SODIUM SUCCINATE
     Indication: RENAL TRANSPLANT
     Route: 042
     Dates: start: 20151104, end: 20151104
  4. SOLU-MEDROL [Suspect]
     Active Substance: METHYLPREDNISOLONE SODIUM SUCCINATE
     Route: 042
     Dates: start: 20151109, end: 20151110
  5. PENTAZOCINE [Suspect]
     Active Substance: PENTAZOCINE
     Indication: PROCEDURAL PAIN
     Dosage: 1 A, ONCE DAILY
     Route: 030
     Dates: start: 20151104, end: 20151104
  6. GRACEPTOR [Interacting]
     Active Substance: TACROLIMUS
     Dosage: 13 MG, ONCE DAILY, IN THE MORNING
     Route: 048
     Dates: start: 20151111
  7. CELLCEPT [Suspect]
     Active Substance: MYCOPHENOLATE MOFETIL\MYCOPHENOLATE MOFETIL HYDROCHLORIDE
     Indication: RENAL TRANSPLANT
     Dosage: 750 MG, TWICE DAILY, IN THE MORNING AND EVENING
     Route: 048
     Dates: start: 20151022
  8. SOLU-MEDROL [Suspect]
     Active Substance: METHYLPREDNISOLONE SODIUM SUCCINATE
     Route: 042
     Dates: start: 20151111, end: 20151112
  9. MARZULENE S [Suspect]
     Active Substance: GLUTAMINE\SODIUM GUALENATE
     Indication: CHRONIC GASTRITIS
     Dosage: 1 PACKET, TWICE DAILY, IN THE MORNING AND EVENING
     Route: 048
     Dates: start: 20151105
  10. SOLU-MEDROL [Suspect]
     Active Substance: METHYLPREDNISOLONE SODIUM SUCCINATE
     Route: 042
     Dates: start: 20151107, end: 20151108
  11. BIOFERMIN                          /01617201/ [Concomitant]
     Active Substance: BACILLUS SUBTILIS\LACTOBACILLUS ACIDOPHILUS\STREPTOCOCCUS FAECAIS
     Indication: DIARRHOEA
     Dosage: 1 PACKET, TWICE DAILY, IN THE MORNING AND EVENING
     Route: 048
     Dates: start: 20151105
  12. FENTANYL                           /00174602/ [Interacting]
     Active Substance: FENTANYL
     Indication: PROCEDURAL PAIN
     Route: 041
     Dates: start: 20151104, end: 20151106
  13. SOLU-MEDROL [Suspect]
     Active Substance: METHYLPREDNISOLONE SODIUM SUCCINATE
     Route: 042
     Dates: start: 20151105, end: 20151106

REACTIONS (4)
  - Drug interaction [Unknown]
  - Steroid diabetes [Unknown]
  - Drug level increased [Recovering/Resolving]
  - Diarrhoea [Unknown]

NARRATIVE: CASE EVENT DATE: 201511
